FAERS Safety Report 7333099-3 (Version None)
Quarter: 2011Q1

REPORT INFORMATION
  Report Type: 
  Country: None (occurrence: None)
  Receive Date: 20110304
  Receipt Date: 20110223
  Transmission Date: 20110831
  Serious: Yes (Hospitalization, Other)
  Sender: FDA-Public Use
  Company Number: JP-ABBOTT-10P-087-0673811-00

PATIENT
  Sex: Female
  Weight: 64 kg

DRUGS (13)
  1. HUMIRA [Suspect]
     Dosage: OPEN LABEL
     Route: 058
     Dates: start: 20100911, end: 20100911
  2. PREDONINE [Concomitant]
     Indication: PRODUCT USED FOR UNKNOWN INDICATION
     Route: 048
     Dates: start: 20091212
  3. GASCON [Concomitant]
     Indication: PRODUCT USED FOR UNKNOWN INDICATION
     Route: 048
     Dates: start: 20100618
  4. LOXONIN [Concomitant]
     Indication: PRODUCT USED FOR UNKNOWN INDICATION
     Route: 048
     Dates: start: 20100226, end: 20100709
  5. HUMIRA [Suspect]
     Dosage: RESCUE (BLIND/ACTIVE DRUG)
     Route: 058
     Dates: start: 20100706, end: 20100720
  6. PENTASA [Concomitant]
     Indication: PRODUCT USED FOR UNKNOWN INDICATION
     Route: 048
     Dates: start: 20100327, end: 20101023
  7. TAKEPRON [Concomitant]
     Indication: REFLUX OESOPHAGITIS
     Route: 048
     Dates: start: 20101009
  8. BIOFERMIN [Concomitant]
     Dates: start: 20100523
  9. PRIMPERAN TAB [Concomitant]
     Indication: PRODUCT USED FOR UNKNOWN INDICATION
     Route: 048
     Dates: start: 20100523, end: 20100606
  10. MUCOSTA [Concomitant]
     Indication: PROPHYLAXIS AGAINST GASTROINTESTINAL ULCER
     Route: 048
     Dates: start: 20091009
  11. HUMIRA [Suspect]
     Indication: COLITIS ULCERATIVE
     Dosage: BLINDED
     Route: 058
     Dates: start: 20100427, end: 20100622
  12. HUMIRA [Suspect]
     Dosage: OPEN LABEL
     Route: 058
     Dates: start: 20100803, end: 20100828
  13. STROCAIN [Concomitant]
     Indication: GASTRITIS
     Route: 048
     Dates: start: 20100409

REACTIONS (1)
  - CERVIX CARCINOMA [None]
